FAERS Safety Report 23363475 (Version 1)
Quarter: 2024Q1

REPORT INFORMATION
  Report Type: Spontaneous
  Country: CN (occurrence: CN)
  Receive Date: 20240103
  Receipt Date: 20240103
  Transmission Date: 20240410
  Serious: Yes (Hospitalization, Other)
  Sender: FDA-Public Use
  Company Number: CN-FreseniusKabi-FK202321363

PATIENT
  Age: 0 Year
  Sex: Male
  Weight: 2.98 kg

DRUGS (10)
  1. SMOFLIPID [Suspect]
     Active Substance: FISH OIL\MEDIUM-CHAIN TRIGLYCERIDES\OLIVE OIL\SOYBEAN OIL
     Indication: Parenteral nutrition
     Route: 041
     Dates: start: 20231203, end: 20231203
  2. DEXTROSE [Suspect]
     Active Substance: DEXTROSE\DEXTROSE MONOHYDRATE
     Indication: Parenteral nutrition
     Route: 041
     Dates: start: 20231203, end: 20231203
  3. ELECTROLYTES NOS\MINERALS\SORBITOL [Suspect]
     Active Substance: ELECTROLYTES NOS\MINERALS\SORBITOL
     Indication: Parenteral nutrition
     Route: 041
     Dates: start: 20231203, end: 20231203
  4. VITAMINS [Suspect]
     Active Substance: VITAMINS
     Indication: Parenteral nutrition
     Route: 041
     Dates: start: 20231203, end: 20231203
  5. ERGOCALCIFEROL\PHYTONADIONE\RETINOL\TOCOPHEROL [Suspect]
     Active Substance: ERGOCALCIFEROL\PHYTONADIONE\RETINOL\TOCOPHEROL
     Indication: Parenteral nutrition
     Route: 041
     Dates: start: 20231203, end: 20231203
  6. CALCIUM GLUCONATE [Suspect]
     Active Substance: CALCIUM GLUCONATE
     Indication: Parenteral nutrition
     Dosage: FORM OF ADMIN. INJECTION ?ROUTE OF ADMIN. INTRAVENOUS DRIP ( IM )
     Dates: start: 20231203, end: 20231203
  7. DEXTROSE [Suspect]
     Active Substance: DEXTROSE\DEXTROSE MONOHYDRATE
     Indication: Parenteral nutrition
     Dosage: FORM OF ADMIN. REAGENT ?ROUTE OF ADMIN. INTRAVENOUS DRIP ( IM )
     Dates: start: 20231203, end: 20231203
  8. AMINO ACIDS, SOURCE UNSPECIFIED [Suspect]
     Active Substance: AMINO ACIDS, SOURCE UNSPECIFIED
     Indication: Parenteral nutrition
     Dosage: FORM OF ADMIN. INJECTION  ?ROUTE OF ADMIN. INTRAVENOUS DRIP ( IM )
     Dates: start: 20231203, end: 20231203
  9. POTASSIUM CHLORIDE [Suspect]
     Active Substance: POTASSIUM CHLORIDE
     Indication: Parenteral nutrition
     Dosage: FORM OF ADMIN. INJECTION  ?ROUTE OF ADMIN. INTRAVENOUS DRIP ( IM )
     Dates: start: 20231203, end: 20231203
  10. SODIUM CHLORIDE [Suspect]
     Active Substance: SODIUM CHLORIDE
     Indication: Parenteral nutrition
     Dosage: FORM OF ADMIN. INJECTION  ?ROUTE OF ADMIN. INTRAVENOUS DRIP ( IM )
     Dates: start: 20231203, end: 20231203

REACTIONS (2)
  - Cholestasis [Unknown]
  - Liver injury [Unknown]

NARRATIVE: CASE EVENT DATE: 20231215
